FAERS Safety Report 5695162-2 (Version None)
Quarter: 2008Q2

REPORT INFORMATION
  Report Type: 
  Country: None (occurrence: None)
  Receive Date: 20080404
  Receipt Date: 20080325
  Transmission Date: 20081010
  Serious: Yes (Hospitalization, Other)
  Sender: FDA-Public Use
  Company Number: US-PFIZER INC-2008026612

PATIENT
  Sex: Female

DRUGS (4)
  1. DILANTIN [Suspect]
     Indication: HYPOGLYCAEMIC SEIZURE
  2. ANCEF [Suspect]
  3. FENTANYL [Suspect]
  4. CONTRAST MEDIA [Suspect]

REACTIONS (4)
  - LUPUS-LIKE SYNDROME [None]
  - SKIN ULCER [None]
  - STEVENS-JOHNSON SYNDROME [None]
  - TOXIC EPIDERMAL NECROLYSIS [None]
